FAERS Safety Report 13122342 (Version 1)
Quarter: 2017Q1

REPORT INFORMATION
  Report Type: Spontaneous
  Country: MX (occurrence: MX)
  Receive Date: 20170117
  Receipt Date: 20170117
  Transmission Date: 20170428
  Serious: Yes (Hospitalization, Other)
  Sender: FDA-Public Use
  Company Number: MX-MYLANLABS-2017M1001923

PATIENT

DRUGS (4)
  1. TENOFOVIR [Suspect]
     Active Substance: TENOFOVIR
     Indication: ANTIRETROVIRAL THERAPY
     Route: 065
  2. EFAVIRENZ [Suspect]
     Active Substance: EFAVIRENZ
     Indication: ANTIRETROVIRAL THERAPY
     Route: 065
  3. EMTRICITABINE [Suspect]
     Active Substance: EMTRICITABINE
     Indication: ANTIRETROVIRAL THERAPY
     Route: 065
  4. VALGANCICLOVIR. [Concomitant]
     Active Substance: VALGANCICLOVIR
     Indication: CYTOMEGALOVIRUS CHORIORETINITIS
     Route: 048

REACTIONS (3)
  - Jejunal perforation [Recovered/Resolved]
  - Immune reconstitution inflammatory syndrome [Unknown]
  - Large intestine perforation [Recovered/Resolved]
